FAERS Safety Report 19938785 (Version 5)
Quarter: 2022Q1

REPORT INFORMATION
  Report Type: Report from Study
  Country: US (occurrence: US)
  Receive Date: 20211011
  Receipt Date: 20220214
  Transmission Date: 20220423
  Serious: No
  Sender: FDA-Public Use
  Company Number: US-NOVARTISTESTPH-NVSC2021US232357

PATIENT
  Sex: Female

DRUGS (1)
  1. COSENTYX [Suspect]
     Active Substance: SECUKINUMAB
     Indication: Psoriatic arthropathy
     Dosage: 300 MG (A MONTH AGO)
     Route: 065

REACTIONS (5)
  - Feeling abnormal [Unknown]
  - Carpal tunnel syndrome [Unknown]
  - Product distribution issue [Unknown]
  - Pain [Unknown]
  - COVID-19 [Unknown]
